FAERS Safety Report 5708951-2 (Version None)
Quarter: 2008Q2

REPORT INFORMATION
  Report Type: 
  Country: None (occurrence: None)
  Receive Date: 20080414
  Receipt Date: 20080414
  Transmission Date: 20081010
  Serious: Yes (Other)
  Sender: FDA-Public Use
  Company Number: None

PATIENT
  Age: 42 Year
  Sex: Female
  Weight: 90.7194 kg

DRUGS (2)
  1. LYRICA [Suspect]
     Indication: NERVE COMPRESSION
     Dosage: 50MG 1 A DAY PO
     Route: 048
     Dates: start: 20080401, end: 20080406
  2. LYRICA [Suspect]
     Indication: NEURALGIA
     Dosage: 50MG 1 A DAY PO
     Route: 048
     Dates: start: 20080401, end: 20080406

REACTIONS (8)
  - DYSURIA [None]
  - FACIAL PAIN [None]
  - HEADACHE [None]
  - RASH [None]
  - SCAB [None]
  - SKIN LESION [None]
  - STOMACH DISCOMFORT [None]
  - VISION BLURRED [None]
